FAERS Safety Report 8686583 (Version 2)
Quarter: 2013Q4

REPORT INFORMATION
  Report Type: Spontaneous
  Country: US (occurrence: US)
  Receive Date: 20120726
  Receipt Date: 20131101
  Transmission Date: 20140711
  Serious: No
  Sender: FDA-Public Use
  Company Number: US-009507513-1207USA004098

PATIENT
  Sex: 0

DRUGS (1)
  1. TRUSOPT [Suspect]

REACTIONS (3)
  - Eye pain [Unknown]
  - Photophobia [Unknown]
  - Liquid product physical issue [Unknown]
